FAERS Safety Report 24853483 (Version 2)
Quarter: 2025Q1

REPORT INFORMATION
  Report Type: Spontaneous
  Country: US (occurrence: US)
  Receive Date: 20250117
  Receipt Date: 20250128
  Transmission Date: 20250409
  Serious: No
  Sender: ROCHE
  Company Number: US-ROCHE-10000180431

PATIENT
  Sex: Male

DRUGS (1)
  1. XOLAIR [Suspect]
     Active Substance: OMALIZUMAB
     Indication: Asthma
     Dosage: ONGOING
     Route: 065

REACTIONS (4)
  - Lung disorder [Unknown]
  - Nasal congestion [Unknown]
  - Secretion discharge [Unknown]
  - Cough [Not Recovered/Not Resolved]
